FAERS Safety Report 23529721 (Version 1)
Quarter: 2024Q1

REPORT INFORMATION
  Report Type: Spontaneous
  Country: US (occurrence: US)
  Receive Date: 20240216
  Receipt Date: 20240216
  Transmission Date: 20240410
  Serious: No
  Sender: FDA-Public Use
  Company Number: US-SA-SAC20240208001285

PATIENT
  Sex: Male
  Weight: 87 kg

DRUGS (9)
  1. DUPIXENT [Suspect]
     Active Substance: DUPILUMAB
     Indication: Dermatitis atopic
     Dosage: 300 MG, QOW
     Route: 058
  2. DUPIXENT [Suspect]
     Active Substance: DUPILUMAB
     Indication: Dermatitis
  3. DIAZEPAM [Concomitant]
     Active Substance: DIAZEPAM
  4. GABAPENTIN [Concomitant]
     Active Substance: GABAPENTIN
  5. SILDENAFIL CITRATE [Concomitant]
     Active Substance: SILDENAFIL CITRATE
  6. SILVER SULFADIAZINE [Concomitant]
     Active Substance: SILVER SULFADIAZINE
  7. TRIAMCINOLONE ACETONIDE [Concomitant]
     Active Substance: TRIAMCINOLONE ACETONIDE
  8. TYLENOL [Concomitant]
     Active Substance: ACETAMINOPHEN
  9. ASCORBIC ACID [Concomitant]
     Active Substance: ASCORBIC ACID

REACTIONS (1)
  - Drug ineffective for unapproved indication [Unknown]
